FAERS Safety Report 5927296-9 (Version None)
Quarter: 2008Q4

REPORT INFORMATION
  Report Type: 
  Country: None (occurrence: None)
  Receive Date: 20081017
  Receipt Date: 20081003
  Transmission Date: 20090506
  Serious: No
  Sender: FDA-Public Use
  Company Number: 004727

PATIENT
  Age: 33 Year
  Sex: Male

DRUGS (9)
  1. BUSULFEX [Suspect]
     Indication: STEM CELL TRANSPLANT
     Dosage: 10 MG, QID IV DRIP
     Route: 041
     Dates: start: 20071027, end: 20071028
  2. CYTARABINE [Concomitant]
  3. FLUDARABINE PHOSPHATE [Concomitant]
  4. CYCLOPHOSPHAMIDE [Concomitant]
  5. PHENYTOIN [Concomitant]
  6. NEUTROGIN (LENOGRASTIM) [Concomitant]
  7. METHOTREXATE [Concomitant]
  8. TACROLIMUS [Concomitant]
  9. METHYLPREDNISOLONE [Concomitant]

REACTIONS (3)
  - BONE MARROW TRANSPLANT [None]
  - MALIGNANT NEOPLASM PROGRESSION [None]
  - T-CELL LYMPHOMA RECURRENT [None]
